FAERS Safety Report 14530393 (Version 2)
Quarter: 2018Q1

REPORT INFORMATION
  Report Type: Report from Study
  Country: US (occurrence: US)
  Receive Date: 20180214
  Receipt Date: 20180312
  Transmission Date: 20180509
  Serious: Yes (Hospitalization)
  Sender: FDA-Public Use
  Company Number: US-GLAXOSMITHKLINE-US2018GSK022952

PATIENT
  Age: 39 Year
  Sex: Female
  Weight: 78 kg

DRUGS (16)
  1. BORTEZOMIB [Suspect]
     Active Substance: BORTEZOMIB
     Indication: PROPHYLAXIS
     Dosage: 2.4 MG, CYC
     Route: 040
     Dates: start: 20171214, end: 20180123
  2. CALCITRIOL. [Concomitant]
     Active Substance: CALCITRIOL
  3. DARBEPOETIN ALFA [Concomitant]
     Active Substance: DARBEPOETIN ALFA
  4. ONDANSETRON [Concomitant]
     Active Substance: ONDANSETRON
  5. TACROLIMUS. [Concomitant]
     Active Substance: TACROLIMUS
  6. GLUCOSAMINE [Concomitant]
     Active Substance: GLUCOSAMINE
  7. LOVASTIN [Concomitant]
     Active Substance: LOVASTATIN
  8. LOPERAMIDE [Concomitant]
     Active Substance: LOPERAMIDE
  9. OMEPRAZOLE. [Concomitant]
     Active Substance: OMEPRAZOLE
  10. CALCIUM ACETATE. [Concomitant]
     Active Substance: CALCIUM ACETATE
  11. METOPROLOL. [Concomitant]
     Active Substance: METOPROLOL
  12. BELIMUMAB [Suspect]
     Active Substance: BELIMUMAB
     Indication: PROPHYLAXIS
     Dosage: 750 MG, CYC
     Route: 042
     Dates: start: 20171214
  13. CETIRIZINE [Concomitant]
     Active Substance: CETIRIZINE HYDROCHLORIDE
  14. CINACALCET. [Concomitant]
     Active Substance: CINACALCET
  15. INSULIN DEGLUDEC [Concomitant]
     Active Substance: INSULIN DEGLUDEC
  16. INSULIN LISPRO [Concomitant]
     Active Substance: INSULIN LISPRO

REACTIONS (1)
  - Rash [Unknown]

NARRATIVE: CASE EVENT DATE: 20180206
